FAERS Safety Report 8536578-6 (Version None)
Quarter: 2012Q3

REPORT INFORMATION
  Report Type: 
  Country: None (occurrence: None)
  Receive Date: 20120725
  Receipt Date: 20120719
  Transmission Date: 20120928
  Serious: Yes (Other)
  Sender: FDA-Public Use
  Company Number: CA-ROCHE-1091936

PATIENT
  Age: 46 Year
  Sex: Male

DRUGS (1)
  1. AVASTIN [Suspect]
     Indication: GLIOBLASTOMA

REACTIONS (1)
  - DISEASE PROGRESSION [None]
